FAERS Safety Report 19750797 (Version 1)
Quarter: 2021Q3

REPORT INFORMATION
  Report Type: Spontaneous
  Country: MA (occurrence: MA)
  Receive Date: 20210826
  Receipt Date: 20210826
  Transmission Date: 20211014
  Serious: Yes (Other)
  Sender: FDA-Public Use
  Company Number: MA-MYLANLABS-2021M1055976

PATIENT
  Age: 50 Year
  Sex: Female

DRUGS (6)
  1. OXALIPLATIN MYLAN [Suspect]
     Active Substance: OXALIPLATIN
     Indication: BLADDER CANCER
  2. 5?FLUOROURACIL                     /00098801/ [Suspect]
     Active Substance: FLUOROURACIL
     Indication: ADENOCARCINOMA
     Route: 065
  3. FOLIC ACID. [Suspect]
     Active Substance: FOLIC ACID
     Indication: BLADDER CANCER
  4. OXALIPLATIN MYLAN [Suspect]
     Active Substance: OXALIPLATIN
     Indication: ADENOCARCINOMA
     Route: 065
  5. 5?FLUOROURACIL                     /00098801/ [Suspect]
     Active Substance: FLUOROURACIL
     Indication: BLADDER CANCER
  6. FOLIC ACID. [Suspect]
     Active Substance: FOLIC ACID
     Indication: ADENOCARCINOMA
     Route: 065

REACTIONS (6)
  - Nausea [Unknown]
  - Drug ineffective [Unknown]
  - Intestinal transit time abnormal [Unknown]
  - Gastrointestinal motility disorder [Unknown]
  - Fatigue [Unknown]
  - Vomiting [Unknown]
